FAERS Safety Report 9716054 (Version 1)
Quarter: 2013Q4

REPORT INFORMATION
  Report Type: Spontaneous
  Country: US (occurrence: US)
  Receive Date: 20131127
  Receipt Date: 20131127
  Transmission Date: 20140711
  Serious: Yes (Hospitalization, Other)
  Sender: FDA-Public Use
  Company Number: US-BAYER-2013-142469

PATIENT
  Age: 51 Year
  Sex: Female

DRUGS (4)
  1. ALEVE CAPLET [Suspect]
     Dosage: UNK
     Dates: end: 2009
  2. EXCEDRIN MIGRAINE [Suspect]
     Indication: MIGRAINE
     Dosage: 2 DF, QD
     Route: 048
     Dates: start: 20091013, end: 20091013
  3. EXCEDRIN [ACETYLSALICYLIC ACID,CAFFEINE,PARACETAMOL] [Suspect]
     Indication: MIGRAINE
     Dosage: UNK
     Dates: end: 2009
  4. COUMADIN [Concomitant]

REACTIONS (5)
  - Thrombosis [Recovered/Resolved]
  - Pulmonary embolism [Recovered/Resolved]
  - Chest discomfort [Recovered/Resolved]
  - Chest pain [Recovered/Resolved]
  - Oesophageal pain [Recovered/Resolved]
